FAERS Safety Report 16307045 (Version 1)
Quarter: 2019Q2

REPORT INFORMATION
  Report Type: Report from Study
  Country: None (occurrence: US)
  Receive Date: 20190513
  Receipt Date: 20190513
  Transmission Date: 20190711
  Serious: Yes (Hospitalization)
  Sender: FDA-Public Use
  Company Number: US-ABBVIE-19K-163-2777309-00

PATIENT
  Sex: Male

DRUGS (1)
  1. HUMIRA [Suspect]
     Active Substance: ADALIMUMAB
     Indication: RHEUMATOID ARTHRITIS
     Route: 058
     Dates: start: 201904, end: 2019

REACTIONS (3)
  - Hand fracture [Recovering/Resolving]
  - Lower limb fracture [Recovering/Resolving]
  - Skin abrasion [Recovering/Resolving]

NARRATIVE: CASE EVENT DATE: 2019
